FAERS Safety Report 21664636 (Version 1)
Quarter: 2022Q4

REPORT INFORMATION
  Report Type: Spontaneous
  Country: GB (occurrence: GB)
  Receive Date: 20221130
  Receipt Date: 20221130
  Transmission Date: 20230113
  Serious: Yes (Other)
  Sender: FDA-Public Use
  Company Number: None

PATIENT
  Age: 20 Year
  Sex: Female
  Weight: 55 kg

DRUGS (6)
  1. OXYBUTYNIN [Interacting]
     Active Substance: OXYBUTYNIN
     Indication: Hypertonic bladder
     Dosage: TAKE 2 TOGETHER DAILY
     Route: 048
     Dates: start: 20211203
  2. VENLAFAXINE [Interacting]
     Active Substance: VENLAFAXINE HYDROCHLORIDE
     Indication: Depressed mood
     Dosage: TAKE TWO DAILY
     Route: 065
     Dates: start: 20220414
  3. AMITRIPTYLINE HYDROCHLORIDE [Concomitant]
     Active Substance: AMITRIPTYLINE HYDROCHLORIDE
     Dosage: ONE OR TWO TO BE TAKEN AT NIGHT
     Dates: start: 20210809
  4. ATORVASTATIN [Concomitant]
     Active Substance: ATORVASTATIN
     Indication: Hypercholesterolaemia
     Dosage: ONE TABLET TO BE TAKEN DAILY TO LOWER CHOLESTEROL
     Dates: start: 20211220
  5. DESOGESTREL [Concomitant]
     Active Substance: DESOGESTREL
     Dosage: ONE TABLET TO BE TAKEN ONCE DAY WITHOUT A BREAK
     Dates: start: 20210809
  6. PROCHLORPERAZINE [Concomitant]
     Active Substance: PROCHLORPERAZINE
     Indication: Nausea
     Dosage: ONE TABLET MAXIMUM 3 PER DAY FOR NAUSEA.
     Dates: start: 20220718, end: 20220731

REACTIONS (3)
  - Urinary retention [Recovered/Resolved]
  - Condition aggravated [Recovered/Resolved]
  - Drug interaction [Recovered/Resolved]

NARRATIVE: CASE EVENT DATE: 20220601
